FAERS Safety Report 17318550 (Version 1)
Quarter: 2020Q1

REPORT INFORMATION
  Report Type: Spontaneous
  Country: US (occurrence: US)
  Receive Date: 20200124
  Receipt Date: 20200124
  Transmission Date: 20200409
  Serious: Yes (Death)
  Sender: FDA-Public Use
  Company Number: NVSC2020US013193

PATIENT
  Sex: Female
  Weight: 58 kg

DRUGS (1)
  1. KYMRIAH [Suspect]
     Active Substance: TISAGENLECLEUCEL
     Indication: ACUTE LYMPHOCYTIC LEUKAEMIA
     Dosage: 12 ML, ONCE/SINGLE
     Route: 042
     Dates: start: 20191104, end: 20191104

REACTIONS (1)
  - Drug ineffective [Fatal]
